FAERS Safety Report 9036316 (Version 1)
Quarter: 2013Q1

REPORT INFORMATION
  Report Type: Spontaneous
  Country: KR (occurrence: None)
  Receive Date: 20130114
  Receipt Date: 20130114
  Transmission Date: 20140127
  Serious: Yes (Hospitalization, Disabling, Other)
  Sender: FDA-Public Use
  Company Number: 2012P1000038

PATIENT
  Age: 37 Year
  Sex: Female
  Weight: 72 kg

DRUGS (4)
  1. FENTANYL [Suspect]
     Indication: POSTOPERATIVE ANALGESIA
     Route: 008
  2. LIDOCAINE [Suspect]
     Indication: POSTOPERATIVE ANALGESIA
     Route: 008
  3. BUPIVACAINE [Suspect]
     Indication: ANAESTHESIA PROCEDURE
     Route: 008
  4. CHIROCAINE [Concomitant]

REACTIONS (4)
  - Maternal exposure during delivery [None]
  - Myelitis transverse [None]
  - Mobility decreased [None]
  - Radiculopathy [None]
